FAERS Safety Report 7385492-0 (Version None)
Quarter: 2011Q1

REPORT INFORMATION
  Report Type: 
  Country: None (occurrence: None)
  Receive Date: 20110330
  Receipt Date: 20110323
  Transmission Date: 20110831
  Serious: Yes (Other)
  Sender: FDA-Public Use
  Company Number: US-ELI_LILLY_AND_COMPANY-US201008006709

PATIENT
  Sex: Female
  Weight: 61.224 kg

DRUGS (19)
  1. CALCIUM W/VITAMIN D                /00188401/ [Concomitant]
     Indication: PROPHYLAXIS
     Dates: start: 20100701
  2. SYNTHROID [Concomitant]
     Indication: PROPHYLAXIS
     Dates: start: 20100701
  3. ALLEGRA [Concomitant]
     Indication: PROPHYLAXIS
     Dates: start: 20100701
  4. MEGACE [Concomitant]
     Indication: PROPHYLAXIS
     Dates: start: 20100819
  5. CARBOPLATIN [Suspect]
     Indication: NON-SMALL CELL LUNG CANCER
     Dosage: 6 D/F, OTHER
     Route: 042
     Dates: start: 20100707, end: 20100729
  6. BEVACIZUMAB [Suspect]
     Indication: NON-SMALL CELL LUNG CANCER
     Dosage: 10 MG/KG, OTHER
     Route: 042
     Dates: start: 20100707
  7. FOLIC ACID [Concomitant]
     Indication: PROPHYLAXIS
     Dates: start: 20100702
  8. VITAMIN B-12 [Concomitant]
     Indication: SUPPLEMENTATION THERAPY
     Dosage: 1000 UG, UNK
     Route: 058
     Dates: start: 20100702
  9. FEXOFENADINE [Concomitant]
     Indication: PROPHYLAXIS
     Dates: start: 20100701
  10. PEMETREXED [Suspect]
     Indication: NON-SMALL CELL LUNG CANCER
     Dosage: 500 MG/M2, OTHER
     Route: 042
     Dates: start: 20100707, end: 20100729
  11. ASCORBIC ACID [Concomitant]
     Indication: PROPHYLAXIS
     Dates: start: 20100701
  12. OMEPRAZOLE [Concomitant]
     Indication: PROPHYLAXIS
     Dates: start: 20100701
  13. ADVAIR DISKUS 100/50 [Concomitant]
     Indication: PROPHYLAXIS
     Dates: start: 20100701
  14. HYDROCODONE BITARTRATE/HOMATROPINE METHYBROMIDE [Concomitant]
     Indication: PROPHYLAXIS
     Dates: start: 20100707
  15. PREMPRO [Concomitant]
     Indication: PROPHYLAXIS
     Dates: start: 20100701
  16. ZOFRAN [Concomitant]
     Indication: PROPHYLAXIS
     Dates: start: 20100707
  17. CRESTOR [Concomitant]
     Indication: PROPHYLAXIS
     Dates: start: 20100701
  18. CELEXA [Concomitant]
     Indication: PROPHYLAXIS
     Dates: start: 20100701
  19. ALBUTEROL SULFATE AND IPRATROPIUM BROMIDE [Concomitant]
     Indication: PROPHYLAXIS
     Dates: start: 20100701

REACTIONS (1)
  - DEVICE MALFUNCTION [None]
